FAERS Safety Report 6317486-8 (Version None)
Quarter: 2009Q3

REPORT INFORMATION
  Report Type: 
  Country: None (occurrence: None)
  Receive Date: 20090821
  Receipt Date: 20090818
  Transmission Date: 20100115
  Serious: Yes (Death)
  Sender: FDA-Public Use
  Company Number: JP-JNJFOC-20090802355

PATIENT
  Age: 79 Year
  Sex: Male

DRUGS (5)
  1. RISPERDAL [Suspect]
     Indication: DRUG USE FOR UNKNOWN INDICATION
     Route: 048
  2. INTERFERON BETA [Concomitant]
     Indication: RENAL CANCER
     Route: 042
  3. ZYPREXA [Concomitant]
     Route: 048
  4. RIVOTRIL [Concomitant]
     Route: 048
  5. ALPRAZOLAM [Concomitant]
     Route: 048

REACTIONS (2)
  - COMPLETED SUICIDE [None]
  - DEPRESSION [None]
